FAERS Safety Report 8083123 (Version 2)
Quarter: 2014Q3

REPORT INFORMATION
  Report Type: Spontaneous
  Country: US (occurrence: US)
  Receive Date: 20110809
  Receipt Date: 20140724
  Transmission Date: 20150326
  Serious: Yes (Hospitalization, Other)
  Sender: FDA-Public Use
  Company Number: US-GILEAD-2011-0039761

PATIENT
  Sex: Female

DRUGS (1)
  1. LETAIRIS [Suspect]
     Active Substance: AMBRISENTAN
     Indication: PRODUCT USED FOR UNKNOWN INDICATION
     Dosage: 5 MG, QD
     Route: 065
     Dates: start: 20091021

REACTIONS (5)
  - Surgery [Unknown]
  - Epilepsy [Unknown]
  - Stress [Unknown]
  - Brain operation [Unknown]
  - Convulsion [Unknown]

NARRATIVE: CASE EVENT DATE: 2011
